FAERS Safety Report 5212411-5 (Version None)
Quarter: 2007Q1

REPORT INFORMATION
  Report Type: 
  Country: None (occurrence: None)
  Receive Date: 20070118
  Receipt Date: 20070109
  Transmission Date: 20070707
  Serious: Yes (Other)
  Sender: FDA-Public Use
  Company Number: US-PFIZER INC-2007003024

PATIENT
  Sex: Female

DRUGS (1)
  1. XALATAN [Suspect]

REACTIONS (4)
  - CATARACT [None]
  - DIABETES MELLITUS NON-INSULIN-DEPENDENT [None]
  - INTRAOCULAR PRESSURE INCREASED [None]
  - IRIS HYPERPIGMENTATION [None]
